FAERS Safety Report 4287042-4 (Version None)
Quarter: 2004Q1

REPORT INFORMATION
  Report Type: 
  Country: None (occurrence: None)
  Receive Date: 20040204
  Receipt Date: 20040123
  Transmission Date: 20041129
  Serious: Yes (Congenital Anomaly)
  Sender: FDA-Public Use
  Company Number: 03P-056-0239914-00

PATIENT
  Sex: Male

DRUGS (1)
  1. DEPAKENE [Suspect]

REACTIONS (6)
  - CONGENITAL ANOMALY [None]
  - DEVELOPMENTAL DELAY [None]
  - DRUG EXPOSURE DURING PREGNANCY [None]
  - MULTIPLE CONGENITAL ABNORMALITIES [None]
  - NERVOUS SYSTEM DISORDER [None]
  - SPEECH DISORDER DEVELOPMENTAL [None]
